FAERS Safety Report 5246815-1 (Version None)
Quarter: 2007Q1

REPORT INFORMATION
  Report Type: 
  Country: None (occurrence: None)
  Receive Date: 20070226
  Receipt Date: 20070212
  Transmission Date: 20070707
  Serious: Yes (Hospitalization)
  Sender: FDA-Public Use
  Company Number: DE-ELI_LILLY_AND_COMPANY-DE200702002598

PATIENT
  Sex: Female
  Weight: 64 kg

DRUGS (5)
  1. GEMCITABINE HCL [Suspect]
     Indication: BREAST CANCER
     Dosage: 1650 MG, UNK
     Route: 042
     Dates: start: 20061218
  2. *DOCETAXEL [Suspect]
     Indication: BREAST CANCER
     Dosage: 124 MG, UNK
     Route: 042
     Dates: start: 20061218
  3. TROPISETRON [Concomitant]
     Indication: PROPHYLAXIS OF NAUSEA AND VOMITING
     Dosage: 5 MG, UNK
     Route: 042
     Dates: start: 20070202
  4. DEXAMETHASONE [Concomitant]
     Indication: PROPHYLAXIS OF NAUSEA AND VOMITING
     Dosage: 18 MG, UNK
     Route: 048
     Dates: start: 20070202, end: 20070203
  5. GRANOCYTE [Concomitant]
     Indication: PROPHYLAXIS
     Dosage: 34 U, UNK
     Route: 058
     Dates: start: 20070206

REACTIONS (1)
  - BACK PAIN [None]
